FAERS Safety Report 7001264-0 (Version None)
Quarter: 2010Q3

REPORT INFORMATION
  Report Type: 
  Country: None (occurrence: None)
  Receive Date: 20100920
  Receipt Date: 20100909
  Transmission Date: 20110219
  Serious: Yes (Life-Threatening, Hospitalization)
  Sender: FDA-Public Use
  Company Number: GR-SANOFI-AVENTIS-2010SA054287

PATIENT
  Age: 82 Year
  Sex: Female

DRUGS (13)
  1. LASIX [Suspect]
     Indication: DYSPNOEA
     Route: 042
     Dates: start: 20090206, end: 20090206
  2. LASIX [Suspect]
     Route: 042
     Dates: start: 20090208, end: 20090210
  3. ISOPTIN [Concomitant]
     Indication: HYPERTENSION
     Route: 048
     Dates: start: 20090130, end: 20090212
  4. ISOPTIN [Concomitant]
     Indication: ANGINA PECTORIS
     Route: 048
     Dates: start: 20090130, end: 20090212
  5. PRILOSEC [Concomitant]
     Indication: PROPHYLAXIS
     Route: 042
     Dates: start: 20090130, end: 20090212
  6. MEFOXIL [Concomitant]
     Indication: DIVERTICULITIS
     Route: 042
     Dates: start: 20090201, end: 20090205
  7. FLAGYL [Concomitant]
     Indication: DIVERTICULITIS
     Route: 042
     Dates: start: 20090201, end: 20090212
  8. DEXTRAN IRON COMPLEX [Concomitant]
     Indication: ANAEMIA
     Route: 042
     Dates: start: 20090205, end: 20090206
  9. BEROVENT [Concomitant]
     Indication: DYSPNOEA
     Route: 055
     Dates: start: 20090208, end: 20090212
  10. PULMICORT [Concomitant]
     Indication: DYSPNOEA
     Route: 055
     Dates: start: 20090208, end: 20090212
  11. ULTRA-LEVURE [Concomitant]
     Indication: PRODUCT USED FOR UNKNOWN INDICATION
     Route: 048
     Dates: start: 20090209, end: 20090212
  12. INVESTIGATIONAL DRUG [Concomitant]
     Indication: DIVERTICULITIS
     Route: 042
     Dates: start: 20090205, end: 20090208
  13. INVESTIGATIONAL DRUG [Concomitant]
     Route: 042
     Dates: start: 20090205, end: 20090208

REACTIONS (2)
  - HYPOKALAEMIA [None]
  - HYPOPHOSPHATAEMIA [None]
